FAERS Safety Report 6598022-8 (Version None)
Quarter: 2010Q1

REPORT INFORMATION
  Report Type: 
  Country: None (occurrence: None)
  Receive Date: 20100223
  Receipt Date: 20091222
  Transmission Date: 20100710
  Serious: No
  Sender: FDA-Public Use
  Company Number: US-ALLERGAN-0917724US

PATIENT
  Age: 57 Year
  Sex: Female

DRUGS (2)
  1. ACZONE [Suspect]
     Indication: RASH
     Dosage: UNK
     Route: 061
     Dates: start: 20091210, end: 20091211
  2. BOTOX [Suspect]
     Indication: DRUG USE FOR UNKNOWN INDICATION

REACTIONS (1)
  - RASH [None]
